FAERS Safety Report 4300171-1 (Version None)
Quarter: 2004Q1

REPORT INFORMATION
  Report Type: 
  Country: None (occurrence: None)
  Receive Date: 20040218
  Receipt Date: 20040209
  Transmission Date: 20041129
  Serious: Yes (Other)
  Sender: FDA-Public Use
  Company Number: 2003-07-3439

PATIENT
  Age: 99 Year
  Sex: Female

DRUGS (10)
  1. RIBAVIRIN [Suspect]
     Indication: SEVERE ACUTE RESPIRATORY SYNDROME
     Dosage: SEE IMAGE
     Route: 048
     Dates: start: 20030324, end: 20030330
  2. RIBAVIRIN [Suspect]
     Indication: SEVERE ACUTE RESPIRATORY SYNDROME
     Dosage: SEE IMAGE
     Route: 048
     Dates: start: 20030324, end: 20030401
  3. RIBAVIRIN [Suspect]
     Indication: SEVERE ACUTE RESPIRATORY SYNDROME
     Dosage: SEE IMAGE
     Route: 048
     Dates: start: 20030401, end: 20030401
  4. VIRAZOLE [Suspect]
     Indication: SEVERE ACUTE RESPIRATORY SYNDROME
     Dosage: 1 GRAM Q6H INTRAVENOUS; 1 GRAM INTRAVENOUS
     Route: 042
     Dates: start: 20030324, end: 20030327
  5. VIRAZOLE [Suspect]
     Indication: SEVERE ACUTE RESPIRATORY SYNDROME
     Dosage: 1 GRAM Q6H INTRAVENOUS; 1 GRAM INTRAVENOUS
     Route: 042
     Dates: start: 20030324, end: 20030401
  6. VIRAZOLE [Suspect]
     Indication: SEVERE ACUTE RESPIRATORY SYNDROME
     Dosage: 1 GRAM Q6H INTRAVENOUS; 1 GRAM INTRAVENOUS
     Route: 042
     Dates: start: 20030401, end: 20030401
  7. CEFTRIAXONE [Concomitant]
  8. CIPROFLOXACIN [Concomitant]
  9. MERREM (MEROPENAM) [Concomitant]
  10. TAMIFLU [Concomitant]

REACTIONS (5)
  - BLOOD BILIRUBIN INCREASED [None]
  - HAEMOLYSIS [None]
  - HAEMOLYTIC ANAEMIA [None]
  - HYPOCALCAEMIA [None]
  - HYPOMAGNESAEMIA [None]
